FAERS Safety Report 5174520-9 (Version None)
Quarter: 2006Q4

REPORT INFORMATION
  Report Type: 
  Country: None (occurrence: None)
  Receive Date: 20061214
  Receipt Date: 20060522
  Transmission Date: 20070319
  Serious: No
  Sender: FDA-Public Use
  Company Number: US-AMGEN-KDL180491

PATIENT
  Sex: Male

DRUGS (1)
  1. ENBREL [Suspect]
     Indication: ANKYLOSING SPONDYLITIS
     Route: 058
     Dates: start: 20050102

REACTIONS (5)
  - ANAEMIA [None]
  - FUNGAL INFECTION [None]
  - GASTRIC ULCER [None]
  - RASH GENERALISED [None]
  - WEIGHT DECREASED [None]
